FAERS Safety Report 6889522-1 (Version None)
Quarter: 2010Q3

REPORT INFORMATION
  Report Type: 
  Country: None (occurrence: None)
  Receive Date: 20100730
  Receipt Date: 20080311
  Transmission Date: 20110219
  Serious: No
  Sender: FDA-Public Use
  Company Number: US-PFIZER INC-2008023559

PATIENT
  Sex: Female
  Weight: 127.27 kg

DRUGS (10)
  1. LIPITOR [Suspect]
     Indication: BLOOD CHOLESTEROL ABNORMAL
     Dates: end: 20080311
  2. LEVOTHYROXINE SODIUM [Suspect]
  3. LISINOPRIL [Concomitant]
  4. SERTRALINE HCL [Concomitant]
  5. HYDROCHLOROTHIAZIDE [Concomitant]
  6. TRAMADOL HYDROCHLORIDE [Concomitant]
  7. HYDROCODONE BITARTRATE [Concomitant]
  8. LORAZEPAM [Concomitant]
  9. ACETYLSALICYLIC ACID SRT [Concomitant]
  10. CALCIUM [Concomitant]

REACTIONS (2)
  - INCORRECT DOSE ADMINISTERED [None]
  - OEDEMA PERIPHERAL [None]
